FAERS Safety Report 5123797-4 (Version None)
Quarter: 2006Q4

REPORT INFORMATION
  Report Type: 
  Country: None (occurrence: None)
  Receive Date: 20061010
  Receipt Date: 20061004
  Transmission Date: 20070319
  Serious: Yes (Other)
  Sender: FDA-Public Use
  Company Number: AU-AVENTIS-200620301GDDC

PATIENT
  Sex: Female

DRUGS (4)
  1. ARAVA                              /01414801/ [Suspect]
     Dosage: DOSE: UNK
  2. KARVEA [Suspect]
  3. ACTONEL [Concomitant]
     Dosage: DOSE: UNK
  4. PREDNISONE [Concomitant]
     Dosage: DOSE: UNK

REACTIONS (2)
  - CONVULSION [None]
  - GRAND MAL CONVULSION [None]
